FAERS Safety Report 8964162 (Version 2)
Quarter: 2012Q4

REPORT INFORMATION
  Report Type: 
  Country: US (occurrence: US)
  Receive Date: 20121213
  Receipt Date: 20121227
  Transmission Date: 20130627
  Serious: Yes (Hospitalization)
  Sender: FDA-Public Use
  Company Number: PHEH2012US024412

PATIENT
  Age: 51 Year
  Sex: Male

DRUGS (5)
  1. ZORTRESS [Suspect]
     Indication: HEART TRANSPLANT
     Dosage: 1 mg, BID
     Route: 048
  2. CELLCEPT [Concomitant]
     Dosage: 750 mg, BID
     Route: 048
     Dates: start: 2006
  3. COREG [Concomitant]
     Indication: HYPERTENSION
     Dosage: 18.75 mg, BID
     Route: 048
  4. COZAAR [Concomitant]
     Indication: HYPERTENSION
     Dosage: 50 mg, QD
     Route: 048
  5. LIPITOR [Concomitant]
     Dosage: 80 mg, QD
     Route: 048

REACTIONS (8)
  - Nephrolithiasis [Recovered/Resolved]
  - Flank pain [Recovered/Resolved]
  - Blood creatinine increased [Unknown]
  - Pneumonia [Recovered/Resolved]
  - Lung consolidation [Unknown]
  - Lung infiltration [Unknown]
  - Cough [Recovered/Resolved]
  - Wheezing [Recovered/Resolved]
